FAERS Safety Report 10210489 (Version 1)
Quarter: 2014Q2

REPORT INFORMATION
  Report Type: Spontaneous
  Country: ES (occurrence: ES)
  Receive Date: 20140602
  Receipt Date: 20140602
  Transmission Date: 20141212
  Serious: Yes (Other)
  Sender: FDA-Public Use
  Company Number: ES-WATSON-2014-11700

PATIENT
  Age: 40 Year
  Sex: Female

DRUGS (3)
  1. CARBOPLATIN (UNKNOWN) [Suspect]
     Indication: OVARIAN EPITHELIAL CANCER
     Dosage: 300 MG/M2, UNK
     Route: 065
  2. CISPLATIN (UNKNOWN) [Suspect]
     Indication: OVARIAN EPITHELIAL CANCER
     Dosage: 100 MG/M2, 1/ THREE WEEKS
     Route: 065
  3. GEMCITABINE (UNKNOWN) [Suspect]
     Indication: OVARIAN EPITHELIAL CANCER
     Dosage: 1360 MG/M2, 1/ THREE WEEKS
     Route: 065

REACTIONS (6)
  - Vasculitis necrotising [Recovering/Resolving]
  - Polyarteritis nodosa [Recovering/Resolving]
  - Rash [Unknown]
  - Pyrexia [Unknown]
  - Arthralgia [Unknown]
  - Hypersensitivity [Unknown]
